FAERS Safety Report 7502541-7 (Version None)
Quarter: 2011Q2

REPORT INFORMATION
  Report Type: 
  Country: None (occurrence: None)
  Receive Date: 20110517
  Receipt Date: 20110505
  Transmission Date: 20111010
  Serious: Yes (Death, Other)
  Sender: FDA-Public Use
  Company Number: 2011MA004546

PATIENT
  Age: 22 Year
  Sex: Female

DRUGS (6)
  1. LITHIUM CARBONATE [Concomitant]
  2. CLONAZEPAM [Concomitant]
  3. ZOLPIDEM [Concomitant]
  4. OXYCODONE HCL [Suspect]
  5. CLOZAPINE [Suspect]
  6. CLOZAPINE [Concomitant]

REACTIONS (3)
  - RESPIRATORY DEPRESSION [None]
  - MULTIPLE DRUG OVERDOSE INTENTIONAL [None]
  - COMPLETED SUICIDE [None]
